FAERS Safety Report 14461815 (Version 1)
Quarter: 2018Q1

REPORT INFORMATION
  Report Type: Spontaneous
  Country: FR (occurrence: FR)
  Receive Date: 20180130
  Receipt Date: 20180130
  Transmission Date: 20180509
  Serious: Yes (Hospitalization)
  Sender: FDA-Public Use
  Company Number: FR-TEVA-2018-FR-849580

PATIENT
  Age: 56 Year
  Sex: Female

DRUGS (5)
  1. TARCEVA [Interacting]
     Active Substance: ERLOTINIB HYDROCHLORIDE
     Indication: BRONCHIAL CARCINOMA
     Route: 048
     Dates: start: 20170823, end: 201710
  2. KEPPRA [Concomitant]
     Active Substance: LEVETIRACETAM
     Indication: METASTASES TO CENTRAL NERVOUS SYSTEM
     Route: 048
     Dates: start: 201708
  3. DOXYCYCLINE. [Concomitant]
     Active Substance: DOXYCYCLINE
     Dosage: UNKNOWN
     Route: 048
     Dates: start: 201708, end: 201710
  4. KETOPROFEN. [Suspect]
     Active Substance: KETOPROFEN
     Indication: PAIN
     Dosage: UNKNOWN
     Route: 048
     Dates: start: 2016
  5. PARACETAMOL [Concomitant]
     Active Substance: ACETAMINOPHEN
     Indication: PAIN
     Dosage: UNKNOWN
     Route: 048

REACTIONS (2)
  - Gastric perforation [Recovered/Resolved with Sequelae]
  - Drug interaction [Unknown]

NARRATIVE: CASE EVENT DATE: 201710
